FAERS Safety Report 7299613-1 (Version None)
Quarter: 2011Q1

REPORT INFORMATION
  Report Type: 
  Country: None (occurrence: None)
  Receive Date: 20110217
  Receipt Date: 20110211
  Transmission Date: 20110831
  Serious: Yes (Other)
  Sender: FDA-Public Use
  Company Number: US-ABBOTT-11P-163-0701651-00

PATIENT
  Age: 50 Year
  Sex: Male
  Weight: 85.3 kg

DRUGS (23)
  1. CHANTIX [Suspect]
     Indication: EX-TOBACCO USER
     Route: 048
     Dates: start: 20110112, end: 20110112
  2. POTASSIUM CHLORIDE [Concomitant]
     Indication: BLOOD POTASSIUM DECREASED
  3. MARIJUANA [Concomitant]
     Indication: PRODUCT USED FOR UNKNOWN INDICATION
  4. PERCOCET [Concomitant]
     Indication: SURGERY
     Dosage: 10/225MG
  5. ACETYLSALICYLIC ACID [Concomitant]
     Indication: PRODUCT USED FOR UNKNOWN INDICATION
  6. COMBIVENT [Concomitant]
     Indication: RESPIRATORY DISORDER
  7. CLONIDINE [Concomitant]
     Indication: ANALGESIC THERAPY
  8. MESNEX [Concomitant]
     Indication: PRODUCT USED FOR UNKNOWN INDICATION
  9. SYMBICORT [Concomitant]
     Indication: RESPIRATORY DISORDER
     Dosage: 160/4.5 MCG
  10. NEXIUM [Concomitant]
     Indication: DYSPEPSIA
  11. CLONIDINE [Concomitant]
     Indication: OESOPHAGEAL SPASM
  12. METOPROLOL TARTRATE [Concomitant]
     Indication: CARDIAC MURMUR
  13. VICODIN [Concomitant]
     Indication: PRODUCT USED FOR UNKNOWN INDICATION
  14. SPIRIVA [Concomitant]
     Indication: RESPIRATORY DISORDER
  15. GEODON [Concomitant]
     Indication: BIPOLAR DISORDER
  16. VYTORIN [Concomitant]
     Indication: BLOOD CHOLESTEROL
  17. VYTORIN [Concomitant]
     Indication: BLOOD TRIGLYCERIDES ABNORMAL
  18. DEPAKOTE [Suspect]
     Indication: PRODUCT USED FOR UNKNOWN INDICATION
     Dosage: 500MG IN AM; 1000MG PM OR 2000 MG
     Route: 048
  19. TRICOR [Concomitant]
     Indication: BLOOD TRIGLYCERIDES ABNORMAL
  20. TRICOR [Concomitant]
     Indication: BLOOD CHOLESTEROL ABNORMAL
  21. CHANTIX [Suspect]
     Dosage: 2 DOSAGE FORM, ONCE
     Route: 048
     Dates: start: 20110113, end: 20110113
  22. HYDROCHLOROTHIAZIDE [Concomitant]
     Indication: BLOOD PRESSURE ABNORMAL
  23. TYLOX [Concomitant]
     Indication: PRODUCT USED FOR UNKNOWN INDICATION

REACTIONS (7)
  - SOMNOLENCE [None]
  - INCORRECT DOSE ADMINISTERED [None]
  - SOMNAMBULISM [None]
  - VISUAL IMPAIRMENT [None]
  - FEELING DRUNK [None]
  - TREMOR [None]
  - EYE DISORDER [None]
